FAERS Safety Report 18563640 (Version 3)
Quarter: 2021Q2

REPORT INFORMATION
  Report Type: Spontaneous
  Country: US (occurrence: US)
  Receive Date: 20201201
  Receipt Date: 20210507
  Transmission Date: 20210717
  Serious: Yes (Other)
  Sender: FDA-Public Use
  Company Number: US-ASTELLAS-2020US041992

PATIENT
  Age: 66 Year
  Sex: Male

DRUGS (7)
  1. XTANDI [Suspect]
     Active Substance: ENZALUTAMIDE
     Indication: PROSTATE CANCER METASTATIC
     Route: 048
     Dates: start: 20141016, end: 20141030
  2. XGEVA [Suspect]
     Active Substance: DENOSUMAB
     Indication: PRODUCT USED FOR UNKNOWN INDICATION
     Dosage: UNK UNK, UNKNOWN FREQ.
     Route: 065
     Dates: start: 201304
  3. XTANDI [Suspect]
     Active Substance: ENZALUTAMIDE
     Route: 048
     Dates: start: 20141203
  4. XTANDI [Suspect]
     Active Substance: ENZALUTAMIDE
     Dosage: 1 DF(ONE DOSE), UNKNOWN FREQ.
     Route: 048
  5. XTANDI [Suspect]
     Active Substance: ENZALUTAMIDE
     Dosage: UNK, ONCE WEEKLY
     Route: 048
  6. XTANDI [Suspect]
     Active Substance: ENZALUTAMIDE
     Route: 048
     Dates: start: 201501
  7. ABIRATERONE. [Concomitant]
     Active Substance: ABIRATERONE ACETATE
     Indication: PROSTATE CANCER METASTATIC
     Dosage: UNK UNK, UNKNOWN FREQ.
     Route: 065

REACTIONS (17)
  - Pruritus [Not Recovered/Not Resolved]
  - Chromaturia [Not Recovered/Not Resolved]
  - Impaired healing [Not Recovered/Not Resolved]
  - Tooth disorder [Unknown]
  - Product prescribing error [Unknown]
  - Back pain [Unknown]
  - Osteonecrosis of jaw [Unknown]
  - Prostatic specific antigen increased [Unknown]
  - Hepatic cirrhosis [Unknown]
  - Tooth infection [Unknown]
  - Malignant neoplasm progression [Unknown]
  - Pain in jaw [Recovered/Resolved]
  - Nausea [Unknown]
  - Bone loss [Unknown]
  - Varices oesophageal [Unknown]
  - Pain in extremity [Not Recovered/Not Resolved]
  - Portal hypertension [Unknown]

NARRATIVE: CASE EVENT DATE: 201402
